FAERS Safety Report 14170625 (Version 2)
Quarter: 2017Q4

REPORT INFORMATION
  Report Type: Spontaneous
  Country: JP (occurrence: JP)
  Receive Date: 20171108
  Receipt Date: 20171122
  Transmission Date: 20180321
  Serious: Yes (Hospitalization, Other)
  Sender: FDA-Public Use
  Company Number: JP-GLAXOSMITHKLINE-JP2017JPN160932

PATIENT
  Age: 30 Year
  Sex: Female
  Weight: 48 kg

DRUGS (3)
  1. LAMICTAL [Suspect]
     Active Substance: LAMOTRIGINE
     Dosage: 50 MG, QD
     Route: 048
     Dates: start: 20171016, end: 20171016
  2. VALPROATE SODIUM. [Concomitant]
     Active Substance: VALPROATE SODIUM
     Dosage: UNK
     Dates: end: 201709
  3. LAMICTAL [Suspect]
     Active Substance: LAMOTRIGINE
     Indication: EPILEPSY
     Dosage: 25 MG, QD
     Route: 048
     Dates: start: 20171002, end: 20171015

REACTIONS (15)
  - Conjunctivitis [Recovering/Resolving]
  - Lip erosion [Recovering/Resolving]
  - Scab [Recovering/Resolving]
  - Rash maculo-papular [Recovering/Resolving]
  - Blister [Recovering/Resolving]
  - Conjunctival adhesion [Recovering/Resolving]
  - Eye discharge [Recovering/Resolving]
  - Toxic epidermal necrolysis [Recovering/Resolving]
  - Malaise [Recovering/Resolving]
  - Granulocyte count decreased [Recovered/Resolved]
  - Cutaneous symptom [Recovering/Resolving]
  - Oral mucosa erosion [Recovering/Resolving]
  - Erythema [Recovering/Resolving]
  - Platelet count decreased [Recovered/Resolved]
  - Hyperthermia [Recovering/Resolving]

NARRATIVE: CASE EVENT DATE: 201710
